FAERS Safety Report 19067141 (Version 3)
Quarter: 2021Q3

REPORT INFORMATION
  Report Type: Spontaneous
  Country: US (occurrence: US)
  Receive Date: 20210329
  Receipt Date: 20210827
  Transmission Date: 20211014
  Serious: Yes (Hospitalization, Disabling, Other)
  Sender: FDA-Public Use
  Company Number: US-SA-2021SA103060

PATIENT
  Age: 49 Year
  Sex: Male

DRUGS (2)
  1. ZANTAC [Suspect]
     Active Substance: RANITIDINE HYDROCHLORIDE
     Indication: DYSPEPSIA
     Dosage: UNK
     Dates: start: 200008, end: 201710
  2. RANITIDINE HYDROCHLORIDE. [Suspect]
     Active Substance: RANITIDINE HYDROCHLORIDE
     Indication: DYSPEPSIA
     Dosage: UNK
     Dates: start: 200008, end: 201710

REACTIONS (11)
  - Physical disability [Unknown]
  - Hospitalisation [Unknown]
  - Neoplasm malignant [Unknown]
  - Injury [Unknown]
  - Pain [Unknown]
  - Impaired quality of life [Unknown]
  - Gastrointestinal carcinoma [Unknown]
  - Anxiety [Unknown]
  - Colorectal cancer [Unknown]
  - Movement disorder [Unknown]
  - Surgery [Unknown]

NARRATIVE: CASE EVENT DATE: 20040510
